FAERS Safety Report 6300126-1 (Version None)
Quarter: 2009Q3

REPORT INFORMATION
  Report Type: 
  Country: None (occurrence: None)
  Receive Date: 20090806
  Receipt Date: 20090730
  Transmission Date: 20100115
  Serious: No
  Sender: FDA-Public Use
  Company Number: US-ELI_LILLY_AND_COMPANY-US200906007069

PATIENT
  Age: 86 Year
  Sex: Female

DRUGS (3)
  1. FORTEO [Suspect]
     Indication: OSTEOPOROSIS
  2. FORTEO [Suspect]
     Dates: start: 20090101
  3. CALCIUM                                 /N/A/ [Concomitant]

REACTIONS (6)
  - FALL [None]
  - FRACTURE [None]
  - HICCUPS [None]
  - MEMORY IMPAIRMENT [None]
  - PROCEDURAL PAIN [None]
  - SPINAL COMPRESSION FRACTURE [None]
